FAERS Safety Report 6681738-2 (Version None)
Quarter: 2010Q2

REPORT INFORMATION
  Report Type: 
  Country: None (occurrence: None)
  Receive Date: 20100414
  Receipt Date: 20100406
  Transmission Date: 20101027
  Serious: Yes (Hospitalization)
  Sender: FDA-Public Use
  Company Number: GB-TEVA-230138ISR

PATIENT
  Age: 66 Year
  Sex: Female

DRUGS (1)
  1. IBUPROFEN [Suspect]

REACTIONS (1)
  - OSTEOARTHRITIS [None]
